FAERS Safety Report 8220374-3 (Version None)
Quarter: 2012Q1

REPORT INFORMATION
  Report Type: 
  Country: None (occurrence: None)
  Receive Date: 20120320
  Receipt Date: 20120312
  Transmission Date: 20120608
  Serious: Yes (Hospitalization)
  Sender: FDA-Public Use
  Company Number: US-BAYER-2011-025808

PATIENT
  Age: 24 Year
  Sex: Female
  Weight: 97.052 kg

DRUGS (4)
  1. ZITHROMAX [Concomitant]
     Dosage: UNK
     Dates: start: 20090101
  2. ORTHO-NOVUM 7/7/7-21 [Concomitant]
  3. MOTRIN [Concomitant]
  4. YAZ [Suspect]
     Indication: CONTRACEPTION
     Dosage: UNK
     Dates: start: 20070730, end: 20090303

REACTIONS (4)
  - CHOLECYSTITIS [None]
  - DYSPEPSIA [None]
  - NAUSEA [None]
  - ABDOMINAL PAIN UPPER [None]
